FAERS Safety Report 9134041 (Version 1)
Quarter: 2013Q1

REPORT INFORMATION
  Report Type: Spontaneous
  Country: US (occurrence: US)
  Receive Date: 20130304
  Receipt Date: 20130304
  Transmission Date: 20140127
  Serious: No
  Sender: FDA-Public Use
  Company Number: US-009507513-1302USA010518

PATIENT
  Sex: Female

DRUGS (4)
  1. AZASITE [Suspect]
     Indication: DRY EYE
     Dosage: ONE DROP IN EACH EYE ONCE A DAY
     Route: 047
     Dates: start: 201202
  2. AZASITE [Suspect]
     Indication: EYE IRRITATION
  3. CODEINE [Concomitant]
     Dosage: UNK
  4. CORTICOSTEROIDS (UNSPECIFIED) [Concomitant]
     Dosage: UNK

REACTIONS (6)
  - Lacrimation increased [Not Recovered/Not Resolved]
  - Ocular hyperaemia [Not Recovered/Not Resolved]
  - Drug dose omission [Unknown]
  - Eye irritation [Not Recovered/Not Resolved]
  - Dry eye [Not Recovered/Not Resolved]
  - Eye irritation [Not Recovered/Not Resolved]
